FAERS Safety Report 7318353-3 (Version None)
Quarter: 2011Q1

REPORT INFORMATION
  Report Type: 
  Country: None (occurrence: None)
  Receive Date: 20110217
  Receipt Date: 20110217
  Transmission Date: 20110831
  Serious: Yes (Disabling)
  Sender: FDA-Public Use
  Company Number: None

PATIENT
  Sex: Male
  Weight: 116.1208 kg

DRUGS (1)
  1. BUPRENORPHINE 2MG [Suspect]
     Indication: PAIN
     Dosage: BUPRENORPHINE TID ORAL
     Route: 048
     Dates: start: 20090301, end: 20100801

REACTIONS (4)
  - THERAPEUTIC RESPONSE DECREASED [None]
  - NAUSEA [None]
  - HYPERHIDROSIS [None]
  - FATIGUE [None]
